FAERS Safety Report 7797068-1 (Version None)
Quarter: 2011Q4

REPORT INFORMATION
  Report Type: 
  Country: None (occurrence: None)
  Receive Date: 20111005
  Receipt Date: 20110927
  Transmission Date: 20120403
  Serious: Yes (Congenital Anomaly)
  Sender: FDA-Public Use
  Company Number: GB-SANOFI-AVENTIS-2011SA063792

PATIENT

DRUGS (2)
  1. INSULIN GLARGINE [Suspect]
     Indication: MATERNAL EXPOSURE DURING PREGNANCY
     Route: 064
  2. NOVORAPID [Concomitant]

REACTIONS (2)
  - VACTERL SYNDROME [None]
  - MATERNAL EXPOSURE DURING PREGNANCY [None]
